FAERS Safety Report 5092279-0 (Version None)
Quarter: 2006Q3

REPORT INFORMATION
  Report Type: 
  Country: None (occurrence: None)
  Receive Date: 20060825
  Receipt Date: 20060808
  Transmission Date: 20061208
  Serious: Yes (Hospitalization, Other)
  Sender: FDA-Public Use
  Company Number: US200608001794

PATIENT
  Age: 68 Year
  Sex: Female

DRUGS (6)
  1. HUMALOG 25% LISPRO, 75% NPL(LISPRO 25% LISPRO, 75%)PEN, DISPOSABLE [Suspect]
     Indication: DIABETES MELLITUS NON-INSULIN-DEPENDENT
     Dosage: 55 U, EACH MORNING; 58 U, AT NIGHT
     Dates: start: 20010101
  2. HUMALOG 25% LISPRO, 75% NPL(LISPRO 25% LISPRO, 75%)PEN, DISPOSABLE [Suspect]
     Indication: DIABETES MELLITUS NON-INSULIN-DEPENDENT
     Dosage: 55 U, EACH MORNING; 58 U, AT NIGHT
     Dates: start: 20010101
  3. HUMAN INSULIN (RDNA ORIGIN) (HUMAN INSULIN (RDNA ORIGIN) [Suspect]
     Indication: DIABETES MELLITUS NON-INSULIN-DEPENDENT
     Dosage: SUBCUTANEOUS
     Route: 058
     Dates: start: 19980101
  4. HUMALOG MIX 25L / 75NPL PEN (HUMALOG MIX 25L / 75NPL PEN) PEN,DISPOSAB [Concomitant]
  5. AVANDIA [Concomitant]
  6. REZULIN [Concomitant]

REACTIONS (3)
  - ANGIOPLASTY [None]
  - DYSPNOEA [None]
  - PHARMACEUTICAL PRODUCT COMPLAINT [None]
